FAERS Safety Report 10404439 (Version 2)
Quarter: 2014Q2

REPORT INFORMATION
  Report Type: Spontaneous
  Country: US (occurrence: None)
  Receive Date: 20140214
  Receipt Date: 20140625
  Transmission Date: 20141212
  Serious: Yes (Hospitalization)
  Sender: FDA-Public Use
  Company Number: A-US2014-93961

PATIENT
  Age: 76 Year
  Sex: Female

DRUGS (2)
  1. OPSUMIT (MACITENTAN) [Suspect]
     Indication: PULMONARY ARTERIAL HYPERTENSION
     Route: 048
     Dates: start: 20140120
  2. COUMADIN (WARFARIN SODIUM) [Concomitant]

REACTIONS (5)
  - Cardiac failure congestive [None]
  - Fluid retention [None]
  - Nasal congestion [None]
  - Oedema peripheral [None]
  - Rhinorrhoea [None]
